FAERS Safety Report 8118250-X (Version None)
Quarter: 2012Q1

REPORT INFORMATION
  Report Type: 
  Country: None (occurrence: None)
  Receive Date: 20120207
  Receipt Date: 20120130
  Transmission Date: 20120608
  Serious: Yes (Other)
  Sender: FDA-Public Use
  Company Number: US-JNJFOC-20120113476

PATIENT
  Sex: Male
  Weight: 62.14 kg

DRUGS (1)
  1. STELARA [Suspect]
     Indication: PSORIASIS
     Route: 058
     Dates: start: 20110101, end: 20120101

REACTIONS (4)
  - HEPATIC ENZYME INCREASED [None]
  - LUNG INFECTION [None]
  - COUGH [None]
  - BLOOD TEST ABNORMAL [None]
